FAERS Safety Report 19423489 (Version 1)
Quarter: 2021Q2

REPORT INFORMATION
  Report Type: Spontaneous
  Country: NL (occurrence: NL)
  Receive Date: 20210616
  Receipt Date: 20210616
  Transmission Date: 20210717
  Serious: Yes (Hospitalization)
  Sender: FDA-Public Use
  Company Number: NL-MYLANLABS-2021M1034857

PATIENT
  Age: 17 Year
  Sex: Male

DRUGS (14)
  1. METHYLPREDNISOLONE. [Suspect]
     Active Substance: METHYLPREDNISOLONE
     Indication: TRANSPLANT REJECTION
  2. METHYLPREDNISOLONE. [Suspect]
     Active Substance: METHYLPREDNISOLONE
     Indication: ALLERGY PROPHYLAXIS
     Dosage: 500 MILLIGRAM
     Route: 065
  3. ALLOPURINOL. [Concomitant]
     Active Substance: ALLOPURINOL
     Indication: PROPHYLAXIS
     Dosage: UNK
     Route: 065
  4. FUROSEMIDE. [Suspect]
     Active Substance: FUROSEMIDE
     Indication: OLIGURIA
     Dosage: UNK
     Route: 065
  5. METHYLPREDNISOLONE. [Suspect]
     Active Substance: METHYLPREDNISOLONE
     Indication: IMMUNOSUPPRESSANT DRUG THERAPY
  6. ALEMTUZUMAB [Concomitant]
     Active Substance: ALEMTUZUMAB
     Indication: TRANSPLANT REJECTION
     Dosage: 30 MILLIGRAM, 2 DOSES WERE ADMINISTERED
     Route: 058
  7. CLEMASTINE [Concomitant]
     Active Substance: CLEMASTINE
     Indication: ALLERGY PROPHYLAXIS
     Dosage: 2 MILLIGRAM
     Route: 065
  8. FUROSEMIDE. [Suspect]
     Active Substance: FUROSEMIDE
     Indication: FLUID OVERLOAD
  9. PREDNISOLONE. [Suspect]
     Active Substance: PREDNISOLONE
     Indication: TRANSPLANT REJECTION
     Dosage: UNK
     Route: 065
  10. ACETAMINOPHEN. [Concomitant]
     Active Substance: ACETAMINOPHEN
     Indication: PYREXIA
  11. ACETAMINOPHEN. [Concomitant]
     Active Substance: ACETAMINOPHEN
     Indication: HEADACHE
  12. ALLOPURINOL. [Concomitant]
     Active Substance: ALLOPURINOL
     Indication: BLOOD URIC ACID INCREASED
  13. PREDNISOLONE. [Suspect]
     Active Substance: PREDNISOLONE
     Indication: IMMUNOSUPPRESSANT DRUG THERAPY
  14. ACETAMINOPHEN. [Concomitant]
     Active Substance: ACETAMINOPHEN
     Indication: PROPHYLAXIS
     Dosage: 500 MILLIGRAM
     Route: 065

REACTIONS (1)
  - Drug ineffective [Unknown]
